FAERS Safety Report 8177744-1 (Version None)
Quarter: 2012Q1

REPORT INFORMATION
  Report Type: 
  Country: None (occurrence: None)
  Receive Date: 20120301
  Receipt Date: 20120223
  Transmission Date: 20120608
  Serious: Yes (Life-Threatening, Hospitalization, Other)
  Sender: FDA-Public Use
  Company Number: JP-JNJFOC-20111200604

PATIENT
  Sex: Female
  Weight: 35 kg

DRUGS (28)
  1. REMICADE [Suspect]
     Route: 042
     Dates: start: 20111013
  2. STEROIDS NOS [Suspect]
     Indication: PRODUCT USED FOR UNKNOWN INDICATION
     Route: 065
  3. PREDNISOLONE [Concomitant]
     Route: 048
     Dates: start: 20030501
  4. PREDNISOLONE [Concomitant]
     Route: 048
     Dates: start: 20060125
  5. PREDNISOLONE [Concomitant]
     Route: 048
     Dates: start: 20040809
  6. FORTEO [Concomitant]
     Route: 058
  7. FERROUS CITRATE [Concomitant]
     Route: 065
  8. RHEUMATREX [Suspect]
     Indication: PRODUCT USED FOR UNKNOWN INDICATION
     Route: 048
     Dates: start: 20030922
  9. ETODOLAC [Concomitant]
     Route: 048
  10. SELBEX [Concomitant]
     Route: 048
  11. REMICADE [Suspect]
     Indication: RHEUMATOID ARTHRITIS
     Route: 042
     Dates: start: 20041005
  12. METHOTREXATE [Suspect]
     Indication: RHEUMATOID ARTHRITIS
     Dosage: 4MG X 1  2MG X 2
     Route: 048
     Dates: start: 20070213, end: 20111121
  13. RHEUMATREX [Suspect]
     Route: 048
     Dates: start: 20040409
  14. PREDNISOLONE [Concomitant]
     Route: 048
     Dates: start: 20060310
  15. SELBEX [Concomitant]
     Indication: RHEUMATOID ARTHRITIS
     Route: 048
  16. PROTECADIN [Concomitant]
     Route: 048
  17. FOLIC ACID [Concomitant]
     Indication: ANAEMIA
     Route: 048
  18. FERROUS CITRATE [Concomitant]
     Indication: ANAEMIA
     Route: 065
  19. NSAID [Suspect]
     Indication: PRODUCT USED FOR UNKNOWN INDICATION
     Route: 065
  20. PREDNISOLONE [Concomitant]
     Route: 048
     Dates: start: 20050916
  21. RIMATIL [Concomitant]
     Route: 048
     Dates: start: 20030501
  22. REMICADE [Suspect]
     Route: 042
     Dates: start: 20050701
  23. ETODOLAC [Concomitant]
     Indication: RHEUMATOID ARTHRITIS
     Route: 048
  24. FLAVITAN [Concomitant]
     Route: 048
  25. AMLODIPINE [Concomitant]
     Indication: HYPERTENSION
     Route: 048
  26. REMICADE [Suspect]
     Route: 042
     Dates: start: 20050826
  27. KENALOG [Concomitant]
     Route: 065
  28. LIPITOR [Concomitant]
     Indication: HYPERLIPIDAEMIA
     Route: 048

REACTIONS (11)
  - DISSEMINATED INTRAVASCULAR COAGULATION [None]
  - NECROTISING OESOPHAGITIS [None]
  - BONE MARROW FAILURE [None]
  - INTESTINAL OBSTRUCTION [None]
  - LIVER DISORDER [None]
  - DUODENAL ULCER [None]
  - SEPSIS [None]
  - NECROTISING COLITIS [None]
  - JOINT ARTHROPLASTY [None]
  - FOREARM FRACTURE [None]
  - STOMATITIS [None]
